FAERS Safety Report 8366910-8 (Version None)
Quarter: 2012Q2

REPORT INFORMATION
  Report Type: 
  Country: None (occurrence: None)
  Receive Date: 20120517
  Receipt Date: 20120508
  Transmission Date: 20120825
  Serious: Yes (Death)
  Sender: FDA-Public Use
  Company Number: CA-ROCHE-1066842

PATIENT
  Age: 45 Year
  Sex: Female

DRUGS (7)
  1. TNKASE [Suspect]
     Indication: PRODUCT USED FOR UNKNOWN INDICATION
     Route: 042
  2. INSULIN [Concomitant]
     Route: 065
  3. NOREPINEPHRINE BITARTRATE [Concomitant]
     Route: 065
  4. DOPAMINE HCL [Concomitant]
     Route: 065
  5. SODIUM BICARBONATE [Concomitant]
     Route: 065
  6. HEPARIN SODIUM [Concomitant]
     Route: 042
  7. RANITIDINE [Concomitant]
     Route: 065

REACTIONS (3)
  - BRAIN INJURY [None]
  - BRAIN SCAN ABNORMAL [None]
  - HAEMORRHAGE INTRACRANIAL [None]
